FAERS Safety Report 12321559 (Version 1)
Quarter: 2016Q2

REPORT INFORMATION
  Report Type: Spontaneous
  Country: KZ (occurrence: KZ)
  Receive Date: 20160502
  Receipt Date: 20160502
  Transmission Date: 20160815
  Serious: Yes (Hospitalization)
  Sender: FDA-Public Use
  Company Number: KZ-BAYER-2016-083339

PATIENT
  Age: 67 Year
  Sex: Male
  Weight: 109 kg

DRUGS (2)
  1. ULTRAVIST [Suspect]
     Active Substance: IOPROMIDE
     Indication: INVESTIGATION
  2. ULTRAVIST [Suspect]
     Active Substance: IOPROMIDE
     Indication: HAEMANGIOMA OF LIVER
     Dosage: 20 MG, UNK
     Route: 042
     Dates: start: 20160428, end: 20160428

REACTIONS (5)
  - Nausea [None]
  - Erythema [None]
  - Dyspnoea [None]
  - Sensation of foreign body [None]
  - Vomiting [None]

NARRATIVE: CASE EVENT DATE: 20160428
